FAERS Safety Report 7576986-3 (Version None)
Quarter: 2011Q2

REPORT INFORMATION
  Report Type: 
  Country: None (occurrence: None)
  Receive Date: 20110628
  Receipt Date: 20110128
  Transmission Date: 20111010
  Serious: Yes (Other)
  Sender: FDA-Public Use
  Company Number: US-BAYER-201035919NA

PATIENT
  Age: 28 Year
  Sex: Female
  Weight: 77.098 kg

DRUGS (5)
  1. DROSPIRENONE AND ETHINYL ESTRADIOL [Suspect]
     Indication: PREMENSTRUAL SYNDROME
  2. ALBUTEROL SULFATE AUTOHALER [Concomitant]
     Dosage: UNK
     Dates: start: 20100628
  3. DROSPIRENONE AND ETHINYL ESTRADIOL [Suspect]
     Indication: CONTRACEPTION
     Dosage: 1 DF, QD
     Route: 048
     Dates: start: 20070101, end: 20100101
  4. ZOLOFT [Concomitant]
     Dosage: UNK
     Dates: start: 20100628
  5. SYNTHROID [Concomitant]
     Dosage: UNK
     Dates: start: 20100628

REACTIONS (6)
  - HEPATOBILIARY SCAN ABNORMAL [None]
  - GALLBLADDER INJURY [None]
  - CHOLECYSTITIS CHRONIC [None]
  - BILIARY TRACT DISORDER [None]
  - NAUSEA [None]
  - ABDOMINAL PAIN [None]
